FAERS Safety Report 19303117 (Version 1)
Quarter: 2021Q2

REPORT INFORMATION
  Report Type: Spontaneous
  Country: US (occurrence: US)
  Receive Date: 20210525
  Receipt Date: 20210525
  Transmission Date: 20210717
  Serious: No
  Sender: FDA-Public Use
  Company Number: US-BEH-2021131905

PATIENT
  Age: 52 Year
  Sex: Female
  Weight: 71.66 kg

DRUGS (1)
  1. HIZENTRA [Suspect]
     Active Substance: HUMAN IMMUNOGLOBULIN G
     Indication: NEUROPATHY PERIPHERAL
     Dosage: 35 GRAM, QW
     Route: 058

REACTIONS (3)
  - Infusion site induration [Unknown]
  - No adverse event [Unknown]
  - Off label use [Unknown]
